FAERS Safety Report 5516834-6 (Version None)
Quarter: 2007Q4

REPORT INFORMATION
  Report Type: 
  Country: None (occurrence: None)
  Receive Date: 20071109
  Receipt Date: 20071026
  Transmission Date: 20080405
  Serious: Yes (Other)
  Sender: FDA-Public Use
  Company Number: 2007S1010955

PATIENT
  Age: 62 Year
  Sex: Female

DRUGS (3)
  1. TERBINAFIN  (TERBINAFINE) [Suspect]
     Indication: ONYCHOMYCOSIS
  2. BISOPROLOL FUMARATE [Concomitant]
  3. MAGNESIUM SULFATE [Concomitant]

REACTIONS (2)
  - HEPATOCELLULAR DAMAGE [None]
  - HYPERTENSION [None]
